FAERS Safety Report 19132789 (Version 1)
Quarter: 2021Q2

REPORT INFORMATION
  Report Type: Spontaneous
  Country: CA (occurrence: CA)
  Receive Date: 20210413
  Receipt Date: 20210413
  Transmission Date: 20210717
  Serious: Yes (Other)
  Sender: FDA-Public Use
  Company Number: CA-PFIZER INC-2021399925

PATIENT
  Age: 50 Year
  Sex: Male

DRUGS (16)
  1. GABAPENTIN. [Concomitant]
     Active Substance: GABAPENTIN
     Dosage: UNK
  2. IPRATROPIUM [Concomitant]
     Active Substance: IPRATROPIUM
     Dosage: UNK
  3. MELATONIN [Concomitant]
     Active Substance: MELATONIN
     Dosage: UNK
  4. QUETIAPINE. [Concomitant]
     Active Substance: QUETIAPINE
  5. SALBUTAMOL [Concomitant]
     Active Substance: ALBUTEROL
  6. MIDAZOLAM. [Suspect]
     Active Substance: MIDAZOLAM
     Dosage: 7 MG ONCE
     Route: 042
  7. ACETAMINOPHEN. [Concomitant]
     Active Substance: ACETAMINOPHEN
     Dosage: UNK
  8. PROPRANOLOL [Concomitant]
     Active Substance: PROPRANOLOL HYDROCHLORIDE
  9. MIDAZOLAM. [Suspect]
     Active Substance: MIDAZOLAM
     Indication: BRONCHOSCOPY
     Dosage: 5 MG ONCE
     Route: 050
  10. LIDOCAINE. [Concomitant]
     Active Substance: LIDOCAINE
     Dosage: UNK
  11. DIMENHYDRINATE. [Concomitant]
     Active Substance: DIMENHYDRINATE
     Dosage: UNK
  12. ESCITALOPRAM [Concomitant]
     Active Substance: ESCITALOPRAM OXALATE
     Dosage: UNK
  13. HYDROMORPHONE [Concomitant]
     Active Substance: HYDROMORPHONE
     Dosage: UNK
  14. KADIAN [Concomitant]
     Active Substance: MORPHINE SULFATE
     Dosage: UNK
  15. PROPOFOL. [Concomitant]
     Active Substance: PROPOFOL
  16. ZOPICLONE [Concomitant]
     Active Substance: ZOPICLONE

REACTIONS (3)
  - Depressed level of consciousness [Unknown]
  - Unresponsive to stimuli [Unknown]
  - Hypokinesia [Unknown]
